FAERS Safety Report 7262608-8 (Version None)
Quarter: 2011Q1

REPORT INFORMATION
  Report Type: 
  Country: None (occurrence: None)
  Receive Date: 20110130
  Receipt Date: 20101124
  Transmission Date: 20110831
  Serious: Yes (Hospitalization)
  Sender: FDA-Public Use
  Company Number: US-ABBOTT-10P-163-0665447-00

PATIENT
  Sex: Male
  Weight: 74.456 kg

DRUGS (1)
  1. HUMIRA [Suspect]
     Indication: CROHN'S DISEASE
     Route: 058
     Dates: start: 20100429, end: 20100702

REACTIONS (8)
  - ABDOMINAL ABSCESS [None]
  - INFREQUENT BOWEL MOVEMENTS [None]
  - DRUG INEFFECTIVE [None]
  - CROHN'S DISEASE [None]
  - ABDOMINAL PAIN LOWER [None]
  - DYSPHAGIA [None]
  - URINE OUTPUT DECREASED [None]
  - HYPOPHAGIA [None]
